FAERS Safety Report 8090835-9 (Version None)
Quarter: 2012Q1

REPORT INFORMATION
  Report Type: 
  Country: None (occurrence: None)
  Receive Date: 20120125
  Receipt Date: 20120110
  Transmission Date: 20120608
  Serious: Yes (Life-Threatening)
  Sender: FDA-Public Use
  Company Number: 1158717

PATIENT
  Age: 50 Year
  Sex: Female

DRUGS (1)
  1. ISOPROTERENOL HYDROCHLORIDE [Suspect]
     Indication: TILT TABLE TEST
     Dosage: 3 MCG/MIN, INTRAVENOUS DRIP
     Route: 041

REACTIONS (7)
  - SYNCOPE [None]
  - ARTERIOSPASM CORONARY [None]
  - FRACTURE [None]
  - STRESS [None]
  - VENTRICULAR TACHYCARDIA [None]
  - FALL [None]
  - VENTRICULAR EXTRASYSTOLES [None]
